FAERS Safety Report 6734750-9 (Version None)
Quarter: 2010Q2

REPORT INFORMATION
  Report Type: 
  Country: None (occurrence: None)
  Receive Date: 20100519
  Receipt Date: 20100519
  Transmission Date: 20101027
  Serious: Yes (Other)
  Sender: FDA-Public Use
  Company Number: None

PATIENT
  Age: 78 Year
  Sex: Female
  Weight: 78.4723 kg

DRUGS (2)
  1. LIPITOR [Suspect]
     Indication: BLOOD CHOLESTEROL
     Dates: start: 20090101
  2. FENOFIBRATE [Suspect]

REACTIONS (4)
  - ANGINA PECTORIS [None]
  - HYPOAESTHESIA [None]
  - PARAESTHESIA [None]
  - SEASONAL ALLERGY [None]
